FAERS Safety Report 25564119 (Version 1)
Quarter: 2025Q3

REPORT INFORMATION
  Report Type: Spontaneous
  Country: JP (occurrence: JP)
  Receive Date: 20250716
  Receipt Date: 20250716
  Transmission Date: 20251020
  Serious: Yes (Hospitalization)
  Sender: NOVAST LABORATORIES LTD
  Company Number: JP-NOVAST LABORATORIES INC.-2025NOV000248

PATIENT
  Age: 36 Year
  Sex: Female

DRUGS (7)
  1. FLUOROURACIL [Suspect]
     Active Substance: FLUOROURACIL
     Indication: Colon cancer
     Route: 065
  2. FLUOROURACIL [Suspect]
     Active Substance: FLUOROURACIL
     Route: 065
  3. OXALIPLATIN [Concomitant]
     Active Substance: OXALIPLATIN
     Indication: Colon cancer
     Route: 065
  4. LEUCOVORIN [Concomitant]
     Active Substance: LEUCOVORIN\LEUCOVORIN CALCIUM
     Indication: Colon cancer
     Route: 065
  5. BEVACIZUMAB [Concomitant]
     Active Substance: BEVACIZUMAB
     Indication: Colon cancer
     Route: 065
  6. THIAMINE [Concomitant]
     Active Substance: THIAMINE
     Indication: Colon cancer
     Route: 065
  7. IRINOTECAN [Concomitant]
     Active Substance: IRINOTECAN
     Indication: Colon cancer
     Route: 065

REACTIONS (3)
  - Lactic acidosis [Recovered/Resolved]
  - Seizure [Recovered/Resolved]
  - Hyperammonaemia [Unknown]
